FAERS Safety Report 16608197 (Version 1)
Quarter: 2019Q3

REPORT INFORMATION
  Report Type: Spontaneous
  Country: DE (occurrence: DE)
  Receive Date: 20190722
  Receipt Date: 20190722
  Transmission Date: 20191004
  Serious: Yes (Hospitalization)
  Sender: FDA-Public Use
  Company Number: DE-PFIZER INC-2019306323

PATIENT
  Age: 64 Year
  Sex: Female

DRUGS (13)
  1. FLUOROURACIL. [Suspect]
     Active Substance: FLUOROURACIL
     Dosage: UNK MG
     Dates: end: 20180119
  2. FOLIC ACID. [Concomitant]
     Active Substance: FOLIC ACID
     Dosage: 5 MG, 1-0-0-0
  3. IRINOTECAN HCL [Suspect]
     Active Substance: IRINOTECAN HYDROCHLORIDE
     Dosage: UNK MG
     Dates: end: 20180119
  4. ENOXAPARIN [Concomitant]
     Active Substance: ENOXAPARIN
     Dosage: 0.4 MG, 1-0-1-0
     Route: 058
  5. COLECALCIFEROL [Concomitant]
     Active Substance: CHOLECALCIFEROL
     Dosage: 1000 IU, 1-0-0-0
  6. POTASSIUM [Concomitant]
     Active Substance: POTASSIUM
     Dosage: UNK MG, 1-1-1-0
  7. BUTYLSCOPOLAMIN [Concomitant]
     Dosage: UNK MG, AS NEEDED UP TO 2 COATED TABLETS 3X/DAY
  8. ONDANSETRON [Concomitant]
     Active Substance: ONDANSETRON
     Dosage: 8 MG, AS NEEDED UP TO 2X/D IF MCP IS NOT SUFFICIENT
  9. ONDANSETRON [Concomitant]
     Active Substance: ONDANSETRON
     Dosage: 8 MG, 1-1-1-0
  10. PANTOPRAZOLE [Concomitant]
     Active Substance: PANTOPRAZOLE
     Dosage: 40 MG, 1-0-0-0
  11. PANKREATIN (FROM PIG) [Concomitant]
     Dosage: 25000 IU 1-1-1-
  12. METOCLOPRAMIDE. [Concomitant]
     Active Substance: METOCLOPRAMIDE
     Dosage: 10 MG, AS NEEDED UP TO 3X/DAY
  13. OXALIPLATIN. [Suspect]
     Active Substance: OXALIPLATIN
     Dosage: UNK MG, UNK
     Dates: end: 20180119

REACTIONS (5)
  - Headache [Unknown]
  - Dysphagia [Unknown]
  - Pyrexia [Unknown]
  - Chills [Unknown]
  - Pain in extremity [Unknown]
